FAERS Safety Report 9702560 (Version 3)
Quarter: 2013Q4

REPORT INFORMATION
  Report Type: Spontaneous
  Country: US (occurrence: US)
  Receive Date: 20131121
  Receipt Date: 20131216
  Transmission Date: 20140711
  Serious: Yes (Hospitalization)
  Sender: FDA-Public Use
  Company Number: US-ACTELION-A-NJ2013-90609

PATIENT
  Age: 62 Year
  Sex: Female

DRUGS (3)
  1. TRACLEER [Suspect]
     Indication: PULMONARY ARTERIAL HYPERTENSION
     Dosage: UNK
     Route: 048
     Dates: start: 201011
  2. TYVASO [Concomitant]
  3. COUMADIN [Concomitant]

REACTIONS (6)
  - Cardiac operation [Not Recovered/Not Resolved]
  - Arterial repair [Not Recovered/Not Resolved]
  - Heart valve replacement [Not Recovered/Not Resolved]
  - Cardiac pacemaker insertion [Not Recovered/Not Resolved]
  - Chest pain [Recovering/Resolving]
  - Supraventricular tachycardia [Unknown]
